FAERS Safety Report 16870171 (Version 2)
Quarter: 2019Q4

REPORT INFORMATION
  Report Type: Spontaneous
  Country: DE (occurrence: DE)
  Receive Date: 20190930
  Receipt Date: 20191127
  Transmission Date: 20200122
  Serious: Yes (Other)
  Sender: FDA-Public Use
  Company Number: PHHY2019DE225607

PATIENT
  Sex: Female
  Weight: 3.11 kg

DRUGS (4)
  1. AZATHIOPRINE. [Suspect]
     Active Substance: AZATHIOPRINE
     Indication: MYASTHENIA GRAVIS
     Dosage: MATERNAL DOSE: 50 MG, BID
     Route: 064
  2. MESTINON [Concomitant]
     Active Substance: PYRIDOSTIGMINE BROMIDE
     Indication: FOETAL EXPOSURE DURING PREGNANCY
     Dosage: MATERNAL DOSE: 60 MG, 4 TIMES AND 180 MG 2 TIMES AND 240 MG, UNKNOWN
     Route: 064
     Dates: end: 201810
  3. FLUOXETINE [Concomitant]
     Active Substance: FLUOXETINE HYDROCHLORIDE
     Indication: FOETAL EXPOSURE DURING PREGNANCY
     Dosage: MATERNAL DOSE: 20 MG
     Route: 064
  4. MYCOPHENOLATE MOFETIL. [Suspect]
     Active Substance: MYCOPHENOLATE MOFETIL
     Indication: FOETAL EXPOSURE DURING PREGNANCY
     Dosage: MATERNAL DOSE (2 GM)
     Route: 064

REACTIONS (5)
  - Adjustment disorder [Unknown]
  - Foetal exposure during pregnancy [Unknown]
  - Hypothermia [Unknown]
  - Moaning [Unknown]
  - Abdominal pain [Unknown]
